APPROVED DRUG PRODUCT: LORATADINE
Active Ingredient: LORATADINE
Strength: 10MG
Dosage Form/Route: TABLET, ORALLY DISINTEGRATING;ORAL
Application: A075990 | Product #001
Applicant: ACTAVIS LABORATORIES FL INC
Approved: Nov 3, 2003 | RLD: No | RS: No | Type: DISCN